FAERS Safety Report 15389150 (Version 1)
Quarter: 2018Q3

REPORT INFORMATION
  Report Type: Spontaneous
  Country: GB (occurrence: GB)
  Receive Date: 20180917
  Receipt Date: 20180917
  Transmission Date: 20181010
  Serious: Yes (Disabling, Other)
  Sender: FDA-Public Use
  Company Number: GB-SUN PHARMACEUTICAL INDUSTRIES LTD-2018R1-184381

PATIENT
  Age: 30 Year
  Sex: Female
  Weight: 79.37 kg

DRUGS (2)
  1. MEBEVERINE [Interacting]
     Active Substance: MEBEVERINE
     Indication: IRRITABLE BOWEL SYNDROME
     Dosage: ()
     Route: 065
  2. SERTRALINE [Suspect]
     Active Substance: SERTRALINE HYDROCHLORIDE
     Indication: DEPRESSION SUICIDAL
     Dosage: 200 MG
     Route: 048
     Dates: start: 20161212, end: 20180701

REACTIONS (2)
  - Drug interaction [Unknown]
  - Nausea [Unknown]
